FAERS Safety Report 5106830-5 (Version None)
Quarter: 2006Q3

REPORT INFORMATION
  Report Type: 
  Country: None (occurrence: None)
  Receive Date: 20060918
  Receipt Date: 20060911
  Transmission Date: 20061208
  Serious: Yes (Other)
  Sender: FDA-Public Use
  Company Number: US-KINGPHARMUSA00001-K200601167

PATIENT
  Age: 51 Year
  Sex: Female

DRUGS (3)
  1. ALTACE [Suspect]
     Dosage: 10 MG, UNK
  2. NORVASC [Suspect]
     Dosage: UNK  UNK
  3. ASPIRIN [Suspect]
     Dosage: 325 MG, UNK

REACTIONS (1)
  - CEREBROVASCULAR ACCIDENT [None]
